FAERS Safety Report 9548840 (Version 1)
Quarter: 2013Q3

REPORT INFORMATION
  Report Type: Spontaneous
  Country: IE (occurrence: None)
  Receive Date: 20130919
  Receipt Date: 20130919
  Transmission Date: 20140515
  Serious: Yes (Hospitalization)
  Sender: FDA-Public Use
  Company Number: 1892676

PATIENT
  Age: 45 Year
  Sex: Female

DRUGS (2)
  1. (METHOTREXATE) [Suspect]
     Dosage: 10MG, MILLIGRAM (S), 1 WEEK, UNKNOWN
  2. PREDNISOLONE [Suspect]
     Dosage: 40 MG MILLIGRAM (S), UNKNOWN, UNKNOWN

REACTIONS (5)
  - Necrotising fasciitis [None]
  - Sepsis [None]
  - Neutrophilia [None]
  - Escherichia test positive [None]
  - Bacteroides test positive [None]
